FAERS Safety Report 17605732 (Version 1)
Quarter: 2020Q1

REPORT INFORMATION
  Report Type: Report from Study
  Country: IT (occurrence: IT)
  Receive Date: 20200331
  Receipt Date: 20200331
  Transmission Date: 20200409
  Serious: Yes (Other)
  Sender: FDA-Public Use
  Company Number: IT-JNJFOC-20200332174

PATIENT

DRUGS (2)
  1. METHOTREXATE. [Suspect]
     Active Substance: METHOTREXATE
     Indication: PRODUCT USED FOR UNKNOWN INDICATION
     Route: 065
  2. SIMPONI [Suspect]
     Active Substance: GOLIMUMAB
     Indication: PSORIATIC ARTHROPATHY
     Route: 058

REACTIONS (16)
  - Dyspnoea [Unknown]
  - Alopecia [Unknown]
  - Leukopenia [Unknown]
  - Genital candidiasis [Unknown]
  - Pruritus [Unknown]
  - Pharyngotonsillitis [Unknown]
  - Erysipelas [Unknown]
  - Urinary tract infection [Unknown]
  - Thrombocytopenia [Unknown]
  - Aspartate aminotransferase increased [Unknown]
  - Bronchitis [Unknown]
  - Pustular psoriasis [Unknown]
  - Rash erythematous [Unknown]
  - Psoriasis [Unknown]
  - Rash papular [Unknown]
  - Alanine aminotransferase increased [Unknown]
